FAERS Safety Report 18159195 (Version 2)
Quarter: 2020Q3

REPORT INFORMATION
  Report Type: Report from Study
  Country: US (occurrence: US)
  Receive Date: 20200817
  Receipt Date: 20200901
  Transmission Date: 20201103
  Serious: Yes (Hospitalization, Other)
  Sender: FDA-Public Use
  Company Number: US-GILEAD-2019-0427580

PATIENT
  Age: 56 Year
  Sex: Male
  Weight: 151.4 kg

DRUGS (35)
  1. NORVASC [Concomitant]
     Active Substance: AMLODIPINE BESYLATE
     Dosage: 5,MG,DAILY
     Route: 048
     Dates: start: 20100101
  2. DOCUSATE SODIUM. [Concomitant]
     Active Substance: DOCUSATE SODIUM
     Dosage: 100,MG,AS NECESSARY
     Route: 048
     Dates: start: 20190903, end: 20190907
  3. ACETAMINOPHEN. [Concomitant]
     Active Substance: ACETAMINOPHEN
     Dosage: 650,MG,ONCE
     Route: 048
     Dates: start: 20190903, end: 20190903
  4. AXICABTAGENE CILOLEUCEL [Suspect]
     Active Substance: AXICABTAGENE CILOLEUCEL
     Indication: DIFFUSE LARGE B-CELL LYMPHOMA
     Dosage: 68
     Route: 042
     Dates: start: 20190903, end: 20190903
  5. BENADRYL [Concomitant]
     Active Substance: DIPHENHYDRAMINE HYDROCHLORIDE
     Dosage: 50,MG,AS NECESSARY
     Route: 048
     Dates: start: 20190731
  6. SODIUM CHLORIDE 0.9% [Concomitant]
     Active Substance: SODIUM CHLORIDE
     Dosage: 1000,ML,TWICE DAILY
     Route: 042
     Dates: start: 20190830, end: 20190831
  7. VALACYCLOVIR [Concomitant]
     Active Substance: VALACYCLOVIR HYDROCHLORIDE
     Dosage: 500,MG,TWICE DAILY
     Route: 048
     Dates: start: 20190904
  8. POLYETHYLENE GLYCOL [Concomitant]
     Active Substance: POLYETHYLENE GLYCOLS
     Dosage: 17,G,DAILY
     Route: 048
     Dates: start: 20190904, end: 20190906
  9. AFRIN [OXYMETAZOLINE] [Concomitant]
     Dosage: 1,OTHER,DAILY
     Route: 045
     Dates: start: 20140101
  10. SODIUM CHLORIDE 0.9% [Concomitant]
     Active Substance: SODIUM CHLORIDE
     Dosage: 1000,ML,ONCE
     Route: 042
     Dates: start: 20190829, end: 20190829
  11. LIDOCAINE. [Concomitant]
     Active Substance: LIDOCAINE
     Dosage: 5,ML,ONCE
     Route: 058
     Dates: start: 20190829, end: 20190829
  12. SENNA [SENNOSIDE A+B] [Concomitant]
     Active Substance: SENNOSIDES A AND B
     Dosage: 10,ML,TWICE DAILY
     Route: 048
     Dates: start: 20190907, end: 20190907
  13. ACETAMINOPHEN. [Concomitant]
     Active Substance: ACETAMINOPHEN
     Dosage: 1000,MG,AS NECESSARY
     Route: 048
     Dates: start: 20190908, end: 20190913
  14. FLUDARABINE [Suspect]
     Active Substance: FLUDARABINE PHOSPHATE
     Dosage: 83
     Route: 042
     Dates: start: 20190830, end: 20190830
  15. ZYLOPRIM [Concomitant]
     Active Substance: ALLOPURINOL
     Dosage: 100,MG,TWICE DAILY
     Route: 048
     Dates: start: 20100101
  16. INDOCIN [Concomitant]
     Active Substance: INDOMETHACIN
     Dosage: 50,MG,AS NECESSARY
     Route: 048
     Dates: start: 20100101
  17. ONDANSETRON [Concomitant]
     Active Substance: ONDANSETRON
     Dosage: 16,MG,ONCE
     Route: 048
     Dates: start: 20190829, end: 20190831
  18. FENTANYL. [Concomitant]
     Active Substance: FENTANYL
     Dosage: 50,OTHER,OTHER
     Route: 042
     Dates: start: 20190829, end: 20190829
  19. LEVETIRACETAM. [Concomitant]
     Active Substance: LEVETIRACETAM
     Dosage: 500,MG,TWICE DAILY
     Route: 048
     Dates: start: 20190903
  20. ACETAMINOPHEN. [Concomitant]
     Active Substance: ACETAMINOPHEN
     Dosage: 1000,MG,THREE TIMES DAILY
     Route: 048
     Dates: start: 20190907, end: 20190907
  21. OXYCODONE [Concomitant]
     Active Substance: OXYCODONE
     Dosage: 5,MG,DAILY
     Route: 048
     Dates: start: 20190904, end: 20190906
  22. CYCLOPHOSPHAMIDE. [Suspect]
     Active Substance: CYCLOPHOSPHAMIDE
     Indication: BONE MARROW CONDITIONING REGIMEN
     Dosage: 1135
     Route: 042
     Dates: start: 20190829, end: 20190829
  23. CYCLOPHOSPHAMIDE. [Suspect]
     Active Substance: CYCLOPHOSPHAMIDE
     Dosage: 1135
     Route: 042
     Dates: start: 20190830, end: 20190830
  24. FLUDARABINE [Suspect]
     Active Substance: FLUDARABINE PHOSPHATE
     Dosage: 83
     Route: 042
     Dates: start: 20190831, end: 20190831
  25. ONDANSETRON [Concomitant]
     Active Substance: ONDANSETRON
     Dosage: 8,MG,DAILY
     Route: 048
     Dates: start: 20190903, end: 20190908
  26. ENOXAPARIN SODIUM. [Concomitant]
     Active Substance: ENOXAPARIN SODIUM
     Dosage: 40,MG,DAILY
     Route: 058
     Dates: start: 20190903, end: 20190911
  27. CHLORHEXIDINE GLUCONATE AL [Concomitant]
     Dosage: 15,ML,THREE TIMES DAILY
     Route: 050
     Dates: start: 20190903
  28. MIDAZOLAM. [Concomitant]
     Active Substance: MIDAZOLAM
     Dosage: 1,MG,OTHER
     Route: 042
     Dates: start: 20190829, end: 20190829
  29. SENNA [SENNOSIDE A+B] [Concomitant]
     Active Substance: SENNOSIDES A AND B
     Dosage: 17.2,MG,DAILY
     Route: 048
     Dates: start: 20190903, end: 20190906
  30. ACETAMINOPHEN. [Concomitant]
     Active Substance: ACETAMINOPHEN
     Dosage: 650,MG,ONCE
     Route: 042
     Dates: start: 20190908, end: 20190908
  31. CYCLOPHOSPHAMIDE. [Suspect]
     Active Substance: CYCLOPHOSPHAMIDE
     Dosage: 1135
     Route: 042
     Dates: start: 20190831, end: 20190831
  32. FLUDARABINE [Suspect]
     Active Substance: FLUDARABINE PHOSPHATE
     Indication: BONE MARROW CONDITIONING REGIMEN
     Dosage: 83
     Route: 042
     Dates: start: 20190829, end: 20190829
  33. DOCUSATE SODIUM. [Concomitant]
     Active Substance: DOCUSATE SODIUM
     Dosage: 100,MG,THREE TIMES DAILY
     Route: 048
     Dates: start: 20181206, end: 20190814
  34. SODIUM CHLORIDE 0.9% [Concomitant]
     Active Substance: SODIUM CHLORIDE
     Dosage: 1000,ML,ONCE
     Route: 042
     Dates: start: 20190907, end: 20190907
  35. FAMOTIDINE. [Concomitant]
     Active Substance: FAMOTIDINE
     Dosage: 20,MG,TWICE DAILY
     Route: 048
     Dates: start: 20190903

REACTIONS (5)
  - Malaise [Recovered/Resolved]
  - Pyrexia [Recovered/Resolved]
  - Febrile neutropenia [Recovered/Resolved]
  - Oral disorder [Recovered/Resolved]
  - Fatigue [Recovered/Resolved]

NARRATIVE: CASE EVENT DATE: 20190907
